FAERS Safety Report 17445142 (Version 2)
Quarter: 2020Q1

REPORT INFORMATION
  Report Type: Spontaneous
  Country: US (occurrence: US)
  Receive Date: 20200221
  Receipt Date: 20200224
  Transmission Date: 20200409
  Serious: No
  Sender: FDA-Public Use
  Company Number: US-PFIZER INC-2020078461

PATIENT
  Age: 72 Year
  Sex: Female

DRUGS (3)
  1. LYRICA CR [Suspect]
     Active Substance: PREGABALIN
     Indication: BACK PAIN
     Dosage: 82.5 MG, 2X/DAY
     Route: 048
  2. LYRICA CR [Suspect]
     Active Substance: PREGABALIN
     Indication: NERVE INJURY
  3. LYRICA CR [Suspect]
     Active Substance: PREGABALIN
     Indication: ARTHRALGIA

REACTIONS (1)
  - Drug ineffective [Unknown]
